FAERS Safety Report 13182019 (Version 3)
Quarter: 2017Q3

REPORT INFORMATION
  Report Type: Spontaneous
  Country: US (occurrence: US)
  Receive Date: 20170202
  Receipt Date: 20170724
  Transmission Date: 20171127
  Serious: No
  Sender: FDA-Public Use
  Company Number: US-IMPAX LABORATORIES, INC-2016-IPXL-02538

PATIENT
  Age: 82 Year
  Sex: Female

DRUGS (1)
  1. RYTARY [Suspect]
     Active Substance: CARBIDOPA\LEVODOPA
     Indication: PARKINSON^S DISEASE
     Dosage: 23.75/95 MG, 4 CAPSULES BY MOUTH THREE TIMES DAILY
     Route: 048
     Dates: start: 20161217

REACTIONS (3)
  - Drug ineffective [Not Recovered/Not Resolved]
  - Loss of personal independence in daily activities [Unknown]
  - Tremor [Not Recovered/Not Resolved]

NARRATIVE: CASE EVENT DATE: 20161217
